FAERS Safety Report 13924407 (Version 1)
Quarter: 2017Q3

REPORT INFORMATION
  Report Type: Spontaneous
  Country: JP (occurrence: JP)
  Receive Date: 20170831
  Receipt Date: 20170831
  Transmission Date: 20171127
  Serious: Yes (Hospitalization)
  Sender: FDA-Public Use
  Company Number: PHJP2017JP026682

PATIENT
  Age: 64 Year
  Sex: Male

DRUGS (2)
  1. EXELON PATCH [Suspect]
     Active Substance: RIVASTIGMINE
     Indication: COGNITIVE DISORDER
     Dosage: 0.95 MG QD (HALF SIZE PATCH 2.5 (CM2), 4.5 MG RIVASTIGMINE BASE))
     Route: 062
  2. RIVASTACH [Suspect]
     Active Substance: RIVASTIGMINE
     Indication: PRODUCT USED FOR UNKNOWN INDICATION
     Dosage: 0.95 MG QD (HALF SIZE PATCH 2.5 (CM2), 4.5 MG RIVASTIGMINE BASE))
     Route: 062

REACTIONS (5)
  - Wrong technique in product usage process [Unknown]
  - Cognitive disorder [Unknown]
  - Brain neoplasm [Unknown]
  - Inguinal hernia [Unknown]
  - Drug prescribing error [Unknown]
